FAERS Safety Report 23516928 (Version 1)
Quarter: 2024Q1

REPORT INFORMATION
  Report Type: Spontaneous
  Country: US (occurrence: None)
  Receive Date: 20240212
  Receipt Date: 20240212
  Transmission Date: 20240410
  Serious: Yes (Disabling)
  Sender: FDA-Public Use
  Company Number: None

PATIENT
  Age: 75 Year
  Sex: Female
  Weight: 69 kg

DRUGS (2)
  1. CIPROFLOXACIN [Suspect]
     Active Substance: CIPROFLOXACIN
     Indication: Diverticulitis
     Dosage: FREQUENCY : TWICE A DAY;?
     Route: 048
     Dates: start: 20231115, end: 20231125
  2. METRONIDAZOLE [Concomitant]
     Active Substance: METRONIDAZOLE
     Dates: start: 20231115, end: 20231125

REACTIONS (2)
  - Tremor [None]
  - Adverse drug reaction [None]

NARRATIVE: CASE EVENT DATE: 20231128
